FAERS Safety Report 11636086 (Version 1)
Quarter: 2015Q4

REPORT INFORMATION
  Report Type: Spontaneous
  Country: DE (occurrence: DE)
  Receive Date: 20151016
  Receipt Date: 20151016
  Transmission Date: 20160304
  Serious: Yes (Hospitalization)
  Sender: FDA-Public Use
  Company Number: DE-JAZZ-2015-DE-014174

PATIENT
  Sex: Female

DRUGS (4)
  1. FENISTIL [Concomitant]
     Active Substance: DIMETHINDENE
     Indication: ANTIALLERGIC THERAPY
     Dosage: 1 MG, BEFORE INFUSION
     Route: 042
     Dates: start: 20150923, end: 20151003
  2. ERWINASE [Suspect]
     Active Substance: ASPARAGINASE ERWINIA CHRYSANTHEMI
     Indication: ACUTE LYMPHOCYTIC LEUKAEMIA
     Dosage: 20000 IU/M2, EVERY 2 DAYS, TOTAL 7 DOSES
     Route: 042
     Dates: start: 20150528
  3. PREDNISOLONE. [Concomitant]
     Active Substance: PREDNISOLONE
     Indication: ANTIALLERGIC THERAPY
     Dosage: 40 MG, AT INFUSION
     Route: 042
     Dates: start: 20150923, end: 20151003
  4. DIMENHYDRINAT [Concomitant]
     Active Substance: DIMENHYDRINATE
     Indication: ANTIALLERGIC THERAPY
     Dosage: 15.5 MG, BEFORE INFUSION
     Route: 042
     Dates: start: 20150923, end: 20151003

REACTIONS (3)
  - Swollen tongue [Recovered/Resolved]
  - Lip swelling [Recovered/Resolved]
  - Vomiting [Recovered/Resolved]

NARRATIVE: CASE EVENT DATE: 20150530
